FAERS Safety Report 14726209 (Version 2)
Quarter: 2022Q1

REPORT INFORMATION
  Report Type: Spontaneous
  Country: US (occurrence: US)
  Receive Date: 20180406
  Receipt Date: 20220223
  Transmission Date: 20220423
  Serious: Yes (Death)
  Sender: FDA-Public Use
  Company Number: US-VIFOR (INTERNATIONAL) INC.-VIT-2016-06846

PATIENT
  Age: 80 Year
  Sex: Male

DRUGS (11)
  1. VELTASSA [Suspect]
     Active Substance: PATIROMER
     Indication: Hyperkalaemia
     Route: 048
     Dates: start: 20160130
  2. ADVAIR HFA [Concomitant]
     Active Substance: FLUTICASONE PROPIONATE\SALMETEROL XINAFOATE
  3. COREG [Concomitant]
     Active Substance: CARVEDILOL
  4. LIPITOR [Concomitant]
     Active Substance: ATORVASTATIN CALCIUM
  5. ALLOPURINOL [Concomitant]
     Active Substance: ALLOPURINOL
  6. ASPIRIN [Concomitant]
     Active Substance: ASPIRIN
  7. COUMADIN [Concomitant]
     Active Substance: WARFARIN SODIUM
  8. IPRATROPIUM BROMIDE [Concomitant]
     Active Substance: IPRATROPIUM BROMIDE
  9. LISINOPRIL [Concomitant]
     Active Substance: LISINOPRIL
  10. NIFEDIPINE [Concomitant]
     Active Substance: NIFEDIPINE
  11. PATANASE [Concomitant]
     Active Substance: OLOPATADINE HYDROCHLORIDE

REACTIONS (3)
  - Death [Fatal]
  - Constipation [Not Recovered/Not Resolved]
  - Product taste abnormal [Unknown]
